FAERS Safety Report 7474594-6 (Version None)
Quarter: 2011Q2

REPORT INFORMATION
  Report Type: 
  Country: None (occurrence: None)
  Receive Date: 20110503
  Receipt Date: 20110420
  Transmission Date: 20111010
  Serious: Yes (Hospitalization, Disabling)
  Sender: FDA-Public Use
  Company Number: 005775

PATIENT
  Sex: Female
  Weight: 64 kg

DRUGS (13)
  1. PROMETHAZINE [Concomitant]
  2. RANITIC [Concomitant]
  3. FOLIC ACID [Concomitant]
  4. METHOTREXATE SODIUM [Concomitant]
  5. PREDNISOLON /00016201/ [Concomitant]
  6. MAGNESIUM VERLA /02089401/ [Concomitant]
  7. DEKRISTOL [Concomitant]
  8. CIMZIA [Suspect]
     Indication: RHEUMATOID ARTHRITIS
     Dosage: SEE IMAGE
     Route: 058
     Dates: start: 20091126, end: 20100107
  9. PANTOZOL /01263202/ [Concomitant]
  10. NOVAMINSULFON [Concomitant]
  11. DICLOFENAC SODIUM [Concomitant]
  12. SULFASALAZINE [Concomitant]
  13. CALCIUM W/VITAMIN D /00188401/ [Concomitant]

REACTIONS (11)
  - HAEMOGLOBIN DECREASED [None]
  - INTERVERTEBRAL DISC PROTRUSION [None]
  - PULMONARY TUBERCULOSIS [None]
  - ASTHMA [None]
  - MUSCULOSKELETAL PAIN [None]
  - LYMPH NODE TUBERCULOSIS [None]
  - LYMPHADENOPATHY [None]
  - GAMMA-GLUTAMYLTRANSFERASE INCREASED [None]
  - SLEEP DISORDER [None]
  - ACQUIRED DIAPHRAGMATIC EVENTRATION [None]
  - DISSEMINATED TUBERCULOSIS [None]
